FAERS Safety Report 10331588 (Version 1)
Quarter: 2014Q3

REPORT INFORMATION
  Report Type: Spontaneous
  Country: RU (occurrence: RU)
  Receive Date: 20140722
  Receipt Date: 20140722
  Transmission Date: 20150326
  Serious: Yes (Other)
  Sender: FDA-Public Use
  Company Number: RU-ASTRAZENECA-2014SE50917

PATIENT
  Age: 6 Year
  Sex: Male

DRUGS (1)
  1. PULMICORT TURBUHALER [Suspect]
     Active Substance: BUDESONIDE
     Indication: ASTHMA
     Dosage: 0.25 MG/ML, TWO TIMES A DAY
     Route: 055
     Dates: start: 20140614

REACTIONS (3)
  - Depression [Not Recovered/Not Resolved]
  - Growth retardation [Not Recovered/Not Resolved]
  - Abnormal behaviour [Not Recovered/Not Resolved]
